FAERS Safety Report 9843409 (Version 1)
Quarter: 2013Q4

REPORT INFORMATION
  Report Type: Spontaneous
  Country: US (occurrence: None)
  Receive Date: 20131223
  Receipt Date: 20131223
  Transmission Date: 20140711
  Serious: No
  Sender: FDA-Public Use
  Company Number: 220154LEO

PATIENT
  Sex: Male

DRUGS (8)
  1. PICATO (0.015%, GEL) [Suspect]
     Dosage: 1 IN 1 D DERMAL
  2. ATENOLOL (ATENOLOL) [Concomitant]
  3. ZETIA (EZETIMIBE) [Concomitant]
  4. CRESTOR (ROSUVASTAATIN) [Concomitant]
  5. RAMPIPRIL (RAMPIPRIL) [Concomitant]
  6. LEVOTHYROXINE (LEVOTHYROXINE) [Concomitant]
  7. ASA (ACETYLSALICYLIC ACID) [Concomitant]
  8. MULTIVITAMIN (MULTIVITAMIN) [Concomitant]

REACTIONS (3)
  - Drug ineffective [None]
  - Incorrect product storage [None]
  - Drug administration error [None]
